FAERS Safety Report 4280421-0 (Version None)
Quarter: 2004Q1

REPORT INFORMATION
  Report Type: 
  Country: None (occurrence: None)
  Receive Date: 20040128
  Receipt Date: 20040128
  Transmission Date: 20041129
  Serious: Yes (Life-Threatening, Other)
  Sender: FDA-Public Use
  Company Number: None

PATIENT
  Age: 54 Year
  Sex: Male

DRUGS (1)
  1. GATIFLOXACIN [Suspect]
     Indication: EPIDIDYMITIS
     Dosage: 400 MG PO QD
     Route: 048
     Dates: start: 20030713, end: 20020723

REACTIONS (1)
  - HYPERGLYCAEMIA [None]
